FAERS Safety Report 6445718-4 (Version None)
Quarter: 2009Q4

REPORT INFORMATION
  Report Type: 
  Country: None (occurrence: None)
  Receive Date: 20091118
  Receipt Date: 20091118
  Transmission Date: 20100525
  Serious: No
  Sender: FDA-Public Use
  Company Number: None

PATIENT
  Sex: Male
  Weight: 72.5755 kg

DRUGS (33)
  1. MOBIC [Suspect]
     Indication: ARTHRITIS
     Dosage: 15MG QD MOUTH
     Route: 048
     Dates: start: 20090824, end: 20090907
  2. MOBIC [Suspect]
     Indication: ARTHRITIS
     Dosage: 15MG QD MOUTH
     Route: 048
     Dates: start: 20090912, end: 20091012
  3. COUMADIN [Concomitant]
  4. PRILOSEC [Concomitant]
  5. LOVAZA [Concomitant]
  6. CELEBREX [Concomitant]
  7. LIDEX [Concomitant]
  8. CARTEOLOL HYDROCHLORIDE [Concomitant]
  9. ALPHAGAN P [Concomitant]
  10. AZOPT [Concomitant]
  11. XALATAN [Concomitant]
  12. OPTIVE [Concomitant]
  13. VITAMIN D [Concomitant]
  14. VITAMIN B-12 [Concomitant]
  15. FOSAMAX [Concomitant]
  16. TESTOSTERONE [Concomitant]
  17. WESTCORT [Concomitant]
  18. TYLENOL (CAPLET) [Concomitant]
  19. FLUORIDE [Concomitant]
  20. SPLENDA [Concomitant]
  21. IMODIUM [Concomitant]
  22. PEPTO-BISMOL [Concomitant]
  23. AMBIEN CR [Concomitant]
  24. AMBIEN [Concomitant]
  25. GAVISCON [Concomitant]
  26. VICODIN/LORTAB [Concomitant]
  27. PERCOCET [Concomitant]
  28. DARVOCET [Concomitant]
  29. MACROBID [Concomitant]
  30. KEFLEX [Concomitant]
  31. DOXYCYCLINE [Concomitant]
  32. CIPROFLOXACIN [Concomitant]
  33. AMOXICILLIN [Concomitant]

REACTIONS (1)
  - STOMATITIS [None]
